FAERS Safety Report 18092709 (Version 4)
Quarter: 2020Q4

REPORT INFORMATION
  Report Type: Spontaneous
  Country: GR (occurrence: GR)
  Receive Date: 20200730
  Receipt Date: 20201216
  Transmission Date: 20210113
  Serious: Yes (Hospitalization, Other)
  Sender: FDA-Public Use
  Company Number: NVSC2020GR213098

PATIENT
  Age: 49 Year
  Sex: Female
  Weight: 59 kg

DRUGS (4)
  1. METHOTREXATE. [Suspect]
     Active Substance: METHOTREXATE
     Indication: MULTIPLE SCLEROSIS
     Dosage: 15 MG, QW
     Route: 048
  2. METHOTREXATE. [Suspect]
     Active Substance: METHOTREXATE
     Indication: SYSTEMIC SCLERODERMA
  3. DILTIAZEM. [Concomitant]
     Active Substance: DILTIAZEM
     Indication: SYSTEMIC SCLERODERMA
     Dosage: UNK
     Route: 065
  4. METHOTREXATE. [Suspect]
     Active Substance: METHOTREXATE
     Indication: CALCINOSIS

REACTIONS (13)
  - Speech disorder [Unknown]
  - Dysarthria [Unknown]
  - Pain [Unknown]
  - JC virus infection [Recovered/Resolved]
  - Product use in unapproved indication [Unknown]
  - Pyrexia [Unknown]
  - Multiple sclerosis relapse [Not Recovered/Not Resolved]
  - Erythema [Unknown]
  - Abnormal behaviour [Unknown]
  - Clumsiness [Unknown]
  - Mental impairment [Unknown]
  - Progressive multifocal leukoencephalopathy [Recovered/Resolved]
  - Headache [Unknown]
